FAERS Safety Report 12823597 (Version 1)
Quarter: 2016Q4

REPORT INFORMATION
  Report Type: Report from Study
  Country: MX (occurrence: MX)
  Receive Date: 20161007
  Receipt Date: 20161007
  Transmission Date: 20170207
  Serious: Yes (Disabling)
  Sender: FDA-Public Use
  Company Number: MX-AMGEN-MEXSL2016080058

PATIENT
  Age: 61 Year
  Sex: Female
  Weight: 80 kg

DRUGS (1)
  1. VECTIBIX [Suspect]
     Active Substance: PANITUMUMAB
     Indication: COLORECTAL CANCER METASTATIC
     Dosage: UNK, Q15D
     Route: 042
     Dates: start: 20160531

REACTIONS (11)
  - Mouth ulceration [Not Recovered/Not Resolved]
  - Urticaria [Not Recovered/Not Resolved]
  - Dry skin [Not Recovered/Not Resolved]
  - Plicated tongue [Unknown]
  - Skin fissures [Not Recovered/Not Resolved]
  - Eye irritation [Not Recovered/Not Resolved]
  - Stomatitis [Unknown]
  - Rash [Unknown]
  - Dry eye [Not Recovered/Not Resolved]
  - Glossodynia [Unknown]
  - Tongue ulceration [Not Recovered/Not Resolved]

NARRATIVE: CASE EVENT DATE: 201606
